FAERS Safety Report 15967629 (Version 1)
Quarter: 2019Q1

REPORT INFORMATION
  Report Type: Spontaneous
  Country: US (occurrence: US)
  Receive Date: 20190215
  Receipt Date: 20190215
  Transmission Date: 20190418
  Serious: No
  Sender: FDA-Public Use
  Company Number: US-PERRIGO-18US003493

PATIENT
  Age: 65 Year
  Sex: Male
  Weight: 85.26 kg

DRUGS (4)
  1. CETIRIZINE HYDROCHLORIDE. [Suspect]
     Active Substance: CETIRIZINE HYDROCHLORIDE
     Indication: URTICARIA
     Dosage: 10 MG, BID
     Route: 048
     Dates: start: 201802, end: 201803
  2. SINGULAIR [Concomitant]
     Active Substance: MONTELUKAST SODIUM
     Indication: URTICARIA
     Dosage: UNK
     Route: 065
     Dates: start: 2016
  3. XOLAIR [Concomitant]
     Active Substance: OMALIZUMAB
     Indication: URTICARIA
     Dosage: INJECTION, MONTHLY
     Route: 065
     Dates: start: 2016
  4. ANTIHYPERTENSIVES [Concomitant]
     Active Substance: UNSPECIFIED INGREDIENT
     Indication: HYPERTENSION

REACTIONS (2)
  - Product administered to patient of inappropriate age [Recovered/Resolved]
  - Drug ineffective for unapproved indication [Unknown]

NARRATIVE: CASE EVENT DATE: 201802
